FAERS Safety Report 22173832 (Version 1)
Quarter: 2023Q2

REPORT INFORMATION
  Report Type: Spontaneous
  Country: BG (occurrence: BG)
  Receive Date: 20230404
  Receipt Date: 20230404
  Transmission Date: 20230722
  Serious: Yes (Death, Hospitalization, Other)
  Sender: FDA-Public Use
  Company Number: BG-TEVA-2023-BG-2871718

PATIENT
  Age: 85 Year
  Sex: Male

DRUGS (1)
  1. METFORMIN [Suspect]
     Active Substance: METFORMIN HYDROCHLORIDE
     Indication: Type 2 diabetes mellitus
     Dosage: 2 GRAM DAILY;
     Route: 065

REACTIONS (4)
  - Toxicity to various agents [Fatal]
  - Normochromic normocytic anaemia [Unknown]
  - Hyperkalaemia [Unknown]
  - Renal impairment [Unknown]
